FAERS Safety Report 13988075 (Version 2)
Quarter: 2017Q3

REPORT INFORMATION
  Report Type: Spontaneous
  Country: IT (occurrence: IT)
  Receive Date: 20170919
  Receipt Date: 20170928
  Transmission Date: 20171128
  Serious: Yes (Hospitalization)
  Sender: FDA-Public Use
  Company Number: IT-TEVA-2010A-02174

PATIENT
  Age: 45 Year
  Sex: Female

DRUGS (4)
  1. SIMVASTATIN. [Suspect]
     Active Substance: SIMVASTATIN
     Indication: HYPERCHOLESTEROLAEMIA
     Dosage: 20 MILLIGRAM DAILY;
     Route: 065
     Dates: start: 20090701
  2. CICLOSPORIN [Interacting]
     Active Substance: CYCLOSPORINE
     Indication: ALOPECIA UNIVERSALIS
     Dosage: 400 MILLIGRAM DAILY;
     Route: 065
     Dates: start: 200903
  3. CICLOSPORIN [Interacting]
     Active Substance: CYCLOSPORINE
     Dosage: 300 MILLIGRAM DAILY;
     Route: 065
     Dates: start: 200901, end: 200903
  4. AZATHIOPRINE. [Concomitant]
     Active Substance: AZATHIOPRINE
     Indication: ALOPECIA UNIVERSALIS
     Dosage: 50 MILLIGRAM DAILY;
     Route: 065
     Dates: start: 200901

REACTIONS (7)
  - Myalgia [Unknown]
  - Myoglobinuria [Recovering/Resolving]
  - Blood creatine phosphokinase increased [Recovered/Resolved]
  - Acute kidney injury [Recovering/Resolving]
  - Drug interaction [Recovering/Resolving]
  - Muscular weakness [Unknown]
  - Hepatic enzyme increased [Recovering/Resolving]

NARRATIVE: CASE EVENT DATE: 20090805
